FAERS Safety Report 5924776-7 (Version None)
Quarter: 2008Q4

REPORT INFORMATION
  Report Type: 
  Country: None (occurrence: None)
  Receive Date: 20081017
  Receipt Date: 20081002
  Transmission Date: 20090506
  Serious: Yes (Hospitalization, Other)
  Sender: FDA-Public Use
  Company Number: 2008S1018135

PATIENT
  Age: 77 Year
  Sex: Female

DRUGS (6)
  1. TRIMETHOPRIM + SULFAMETHOXAZOLE [Suspect]
     Indication: LEPTOSPIROSIS
  2. TRIMETHOPRIM + SULFAMETHOXAZOLE [Suspect]
     Indication: SCRUB TYPHUS
  3. CEFTAZIDIME [Suspect]
     Indication: LEPTOSPIROSIS
  4. CEFTAZIDIME [Suspect]
     Indication: SCRUB TYPHUS
  5. DOXYCYCLINE [Suspect]
     Indication: LEPTOSPIROSIS
  6. DOXYCYCLINE [Suspect]
     Indication: SCRUB TYPHUS

REACTIONS (4)
  - DRUG HYPERSENSITIVITY [None]
  - DYSPNOEA [None]
  - TOXIC EPIDERMAL NECROLYSIS [None]
  - VANISHING BILE DUCT SYNDROME [None]
